FAERS Safety Report 6963026-X (Version None)
Quarter: 2010Q3

REPORT INFORMATION
  Report Type: 
  Country: None (occurrence: None)
  Receive Date: 20100902
  Receipt Date: 20100826
  Transmission Date: 20110219
  Serious: Yes (Death, Hospitalization, Other)
  Sender: FDA-Public Use
  Company Number: CN-ELI_LILLY_AND_COMPANY-CN201008007588

PATIENT
  Age: 48 Year
  Sex: Female

DRUGS (2)
  1. GEMZAR [Suspect]
     Indication: ADENOCARCINOMA
     Dosage: 1.6 G, ON DAY 1 AND 8
     Route: 042
  2. CISPLATIN [Concomitant]
     Indication: ADENOCARCINOMA
     Dosage: 30 MG, ON DAY 1 AND 4
     Route: 042

REACTIONS (5)
  - CONVULSION [None]
  - ELECTROLYTE IMBALANCE [None]
  - MENORRHAGIA [None]
  - MYOCARDIAL INFARCTION [None]
  - RESPIRATORY FAILURE [None]
